FAERS Safety Report 10724449 (Version 1)
Quarter: 2015Q1

REPORT INFORMATION
  Report Type: Spontaneous
  Country: BR (occurrence: BR)
  Receive Date: 20150120
  Receipt Date: 20150120
  Transmission Date: 20150721
  Serious: Yes (Death, Other)
  Sender: FDA-Public Use
  Company Number: BR-PFIZER INC-2014284222

PATIENT
  Age: 62 Year
  Sex: Male

DRUGS (2)
  1. SUTENT [Suspect]
     Active Substance: SUNITINIB MALATE
     Dosage: 50 MG, ON ALTERNATE DAYS
     Route: 048
  2. SUTENT [Suspect]
     Active Substance: SUNITINIB MALATE
     Indication: RENAL CELL CARCINOMA
     Dosage: 50 MG, CYCLE 4 PER
     Route: 048
     Dates: start: 20130415

REACTIONS (6)
  - Cerebrovascular accident [Unknown]
  - Multi-organ failure [Fatal]
  - Dyspnoea [Unknown]
  - Blister [Unknown]
  - Disease progression [Unknown]
  - Renal cell carcinoma [Unknown]
